FAERS Safety Report 5787248-9 (Version None)
Quarter: 2008Q2

REPORT INFORMATION
  Report Type: 
  Country: None (occurrence: None)
  Receive Date: 20080625
  Receipt Date: 20071119
  Transmission Date: 20081010
  Serious: No
  Sender: FDA-Public Use
  Company Number: US-ASTRAZENECA-2007UW21388

PATIENT
  Age: 75 Year
  Sex: Female
  Weight: 54.4 kg

DRUGS (7)
  1. PULMICORT FLEXHALER [Suspect]
     Indication: COUGH
     Route: 055
  2. SINGULAIR [Concomitant]
  3. FOSAMAX [Concomitant]
  4. SYNTHROID [Concomitant]
  5. ASPIRIN [Concomitant]
  6. CALCIUM [Concomitant]
  7. VITAMIN B-12 [Concomitant]

REACTIONS (2)
  - ILL-DEFINED DISORDER [None]
  - RASH [None]
